FAERS Safety Report 4928894-1 (Version None)
Quarter: 2006Q1

REPORT INFORMATION
  Report Type: 
  Country: None (occurrence: None)
  Receive Date: 20060223
  Receipt Date: 20060210
  Transmission Date: 20060701
  Serious: Yes (Disabling, Other)
  Sender: FDA-Public Use
  Company Number: 2005154804

PATIENT
  Age: 27 Year
  Sex: Male
  Weight: 74.8435 kg

DRUGS (4)
  1. CELEBREX [Suspect]
     Indication: NECK PAIN
     Dosage: 200 MG (200 MG, 1 IN 1 D)
     Dates: start: 20050601, end: 20050701
  2. PREDNISONE TAB [Suspect]
     Indication: SERUM SICKNESS
     Dosage: 20 MG
     Dates: start: 20050804
  3. FLEXERIL [Concomitant]
  4. ULTRACET [Concomitant]

REACTIONS (7)
  - BLOOD IRON DECREASED [None]
  - DRUG HYPERSENSITIVITY [None]
  - LEUKOCYTOSIS [None]
  - POLYARTHRITIS [None]
  - REITER'S SYNDROME [None]
  - SERUM SICKNESS [None]
  - THROMBOCYTHAEMIA [None]
